APPROVED DRUG PRODUCT: RETIN-A-MICRO
Active Ingredient: TRETINOIN
Strength: 0.06%
Dosage Form/Route: GEL;TOPICAL
Application: N020475 | Product #004
Applicant: BAUSCH HEALTH US LLC
Approved: Oct 23, 2017 | RLD: Yes | RS: Yes | Type: RX